FAERS Safety Report 11214294 (Version 1)
Quarter: 2015Q2

REPORT INFORMATION
  Report Type: Report from Study
  Country: GB (occurrence: GB)
  Receive Date: 20150624
  Receipt Date: 20150624
  Transmission Date: 20150821
  Serious: Yes (Other)
  Sender: FDA-Public Use
  Company Number: GB-ROCHE-1596988

PATIENT
  Sex: Female

DRUGS (1)
  1. ROACTEMRA [Suspect]
     Active Substance: TOCILIZUMAB
     Indication: RHEUMATOID ARTHRITIS
     Route: 058
     Dates: start: 20150403

REACTIONS (5)
  - Eye pain [Unknown]
  - Wrong technique in drug usage process [Unknown]
  - Mobility decreased [Unknown]
  - Retinal vascular thrombosis [Unknown]
  - Contusion [Unknown]
